FAERS Safety Report 20167385 (Version 1)
Quarter: 2021Q4

REPORT INFORMATION
  Report Type: Report from Study
  Country: US (occurrence: US)
  Receive Date: 20211209
  Receipt Date: 20211209
  Transmission Date: 20220304
  Serious: Yes (Other)
  Sender: FDA-Public Use
  Company Number: US-JAZZ-2021-US-021465

PATIENT
  Sex: Female

DRUGS (7)
  1. XYREM [Suspect]
     Active Substance: SODIUM OXYBATE
     Indication: Narcolepsy
     Dosage: 3 GRAM,BID
     Route: 048
     Dates: start: 201309, end: 201311
  2. XYREM [Suspect]
     Active Substance: SODIUM OXYBATE
     Indication: Cataplexy
     Dosage: 4.5 GRAM,BID
     Route: 048
     Dates: start: 201311
  3. ESTRACE [Concomitant]
     Active Substance: ESTRADIOL
     Dosage: 0010
     Dates: start: 20150827
  4. ASPIRIN [Concomitant]
     Active Substance: ASPIRIN
     Dosage: 0000
     Dates: start: 20151124
  5. FIORICET [Concomitant]
     Active Substance: ACETAMINOPHEN\BUTALBITAL\CAFFEINE
     Dosage: 0000
     Dates: start: 20160101
  6. CLAVULANATE POTASSIUM [Concomitant]
     Active Substance: CLAVULANATE POTASSIUM
     Dosage: 0000
     Dates: start: 20160422
  7. POTASSIUM [Concomitant]
     Active Substance: POTASSIUM
     Dosage: 0000
     Dates: start: 20181101

REACTIONS (5)
  - Adrenal insufficiency [Recovered/Resolved]
  - Migraine [Unknown]
  - Fibromyalgia [Recovered/Resolved]
  - Anxiety [Recovered/Resolved]
  - Panic attack [Recovered/Resolved]
